FAERS Safety Report 5462926-X (Version None)
Quarter: 2007Q3

REPORT INFORMATION
  Report Type: 
  Country: None (occurrence: None)
  Receive Date: 20070920
  Receipt Date: 20070911
  Transmission Date: 20080115
  Serious: Yes (Disabling)
  Sender: FDA-Public Use
  Company Number: GB-AVENTIS-200714291EU

PATIENT
  Age: 79 Year
  Sex: Female

DRUGS (2)
  1. NATRILIX                           /00340101/ [Suspect]
     Indication: HYPERTENSION
     Dosage: DOSE: UNK
     Route: 048
     Dates: start: 19910101, end: 20060101
  2. VERAPAMIL [Suspect]
     Indication: HYPERTENSION
     Route: 048
     Dates: start: 19980101, end: 20060101

REACTIONS (1)
  - NEUROPATHY PERIPHERAL [None]
